FAERS Safety Report 13687414 (Version 1)
Quarter: 2017Q2

REPORT INFORMATION
  Report Type: Spontaneous
  Country: IT (occurrence: IT)
  Receive Date: 20170624
  Receipt Date: 20170624
  Transmission Date: 20170830
  Serious: Yes (Hospitalization, Other)
  Sender: FDA-Public Use
  Company Number: IT-AUROBINDO-AUR-APL-2011-06138

PATIENT

DRUGS (10)
  1. HALOPERIDOL DECANOATE. [Concomitant]
     Active Substance: HALOPERIDOL DECANOATE
     Indication: SCHIZOAFFECTIVE DISORDER BIPOLAR TYPE
     Dosage: 100 MG,UNK,
     Route: 030
  2. LITHIUM. [Suspect]
     Active Substance: LITHIUM
     Indication: PSYCHOTIC DISORDER
     Dosage: 300 MG,3 TIMES A DAY,
     Route: 065
  3. VALPROATE [Concomitant]
     Active Substance: VALPROIC ACID
     Indication: SCHIZOAFFECTIVE DISORDER BIPOLAR TYPE
     Dosage: 500 MG,DAILY,
     Route: 065
  4. CLOZAPINE. [Suspect]
     Active Substance: CLOZAPINE
     Indication: SCHIZOAFFECTIVE DISORDER
  5. RISPERIDONE AUROBINDO COMPRESSE RIVESTITE CON FILM 2MG [Suspect]
     Active Substance: RISPERIDONE
     Indication: BIPOLAR DISORDER
     Dosage: 4 MG,DAILY,
     Route: 065
  6. OX-CARBAZEPINE [Concomitant]
     Indication: SCHIZOAFFECTIVE DISORDER BIPOLAR TYPE
     Dosage: 1200 MG,DAILY,
     Route: 065
  7. RISPERIDONE AUROBINDO COMPRESSE RIVESTITE CON FILM 2MG [Suspect]
     Active Substance: RISPERIDONE
     Indication: SCHIZOAFFECTIVE DISORDER
     Dosage: 6 MG,DAILY,
     Route: 065
  8. RISPERIDONE AUROBINDO COMPRESSE RIVESTITE CON FILM 2MG [Suspect]
     Active Substance: RISPERIDONE
     Indication: PSYCHOTIC DISORDER
     Dosage: 2 MG,DAILY,
     Route: 065
  9. CLOZAPINE. [Suspect]
     Active Substance: CLOZAPINE
     Indication: BIPOLAR DISORDER
  10. CLOZAPINE. [Suspect]
     Active Substance: CLOZAPINE
     Indication: PSYCHOTIC DISORDER
     Dosage: 275 MG,DAILY,
     Route: 065

REACTIONS (10)
  - Pancreatitis chronic [Recovering/Resolving]
  - Constipation [Unknown]
  - Tachycardia [Unknown]
  - Salivary hypersecretion [Unknown]
  - Granulocytosis [Unknown]
  - Full blood count abnormal [Unknown]
  - Hepatomegaly [Unknown]
  - Cholecystectomy [Recovering/Resolving]
  - Abdominal pain [Unknown]
  - Abdominal distension [Unknown]
